FAERS Safety Report 6600772-1 (Version None)
Quarter: 2010Q1

REPORT INFORMATION
  Report Type: 
  Country: None (occurrence: None)
  Receive Date: 20100225
  Receipt Date: 20100217
  Transmission Date: 20100710
  Serious: Yes (Hospitalization, Other)
  Sender: FDA-Public Use
  Company Number: US-BIOGENIDEC-2006BI013125

PATIENT
  Age: 62 Year
  Sex: Female
  Weight: 99 kg

DRUGS (17)
  1. AVONEX [Suspect]
     Indication: MULTIPLE SCLEROSIS
     Route: 030
     Dates: start: 20031001, end: 20060901
  2. AVONEX [Suspect]
     Route: 030
     Dates: start: 20010829, end: 20030901
  3. AVONEX [Suspect]
     Route: 030
     Dates: start: 20080918
  4. LOTREL [Concomitant]
     Indication: DRUG USE FOR UNKNOWN INDICATION
  5. EFFEXOR [Concomitant]
     Indication: DRUG USE FOR UNKNOWN INDICATION
  6. PREDNISONE TAB [Concomitant]
     Indication: DRUG USE FOR UNKNOWN INDICATION
  7. DITROPAN [Concomitant]
     Indication: DRUG USE FOR UNKNOWN INDICATION
  8. LEVOXYL [Concomitant]
     Indication: DRUG USE FOR UNKNOWN INDICATION
  9. ASPIRIN [Concomitant]
     Indication: DRUG USE FOR UNKNOWN INDICATION
  10. PROTONIX [Concomitant]
     Indication: DRUG USE FOR UNKNOWN INDICATION
  11. METHOTREXATE [Concomitant]
     Indication: DRUG USE FOR UNKNOWN INDICATION
  12. PEPCID [Concomitant]
     Indication: DRUG USE FOR UNKNOWN INDICATION
  13. FOLATE [Concomitant]
     Indication: DRUG USE FOR UNKNOWN INDICATION
  14. CRESTOR [Concomitant]
     Indication: DRUG USE FOR UNKNOWN INDICATION
  15. BENICAR [Concomitant]
     Indication: DRUG USE FOR UNKNOWN INDICATION
  16. HYDROCHLOROTHIAZIDE [Concomitant]
     Indication: DRUG USE FOR UNKNOWN INDICATION
  17. WELLCHOL [Concomitant]
     Indication: DRUG USE FOR UNKNOWN INDICATION

REACTIONS (4)
  - BREAST CANCER RECURRENT [None]
  - BREAST CANCER STAGE I [None]
  - INFLUENZA LIKE ILLNESS [None]
  - RENAL FAILURE [None]
